FAERS Safety Report 22032716 (Version 1)
Quarter: 2023Q1

REPORT INFORMATION
  Report Type: Spontaneous
  Country: GB (occurrence: GB)
  Receive Date: 20230224
  Receipt Date: 20230224
  Transmission Date: 20230418
  Serious: Yes (Other)
  Sender: FDA-Public Use
  Company Number: GB-MYLANLABS-2023M1008371

PATIENT
  Age: 24 Year
  Sex: Male

DRUGS (14)
  1. VALPROATE SODIUM [Suspect]
     Active Substance: VALPROATE SODIUM
     Indication: Product used for unknown indication
     Dosage: 2 G ((2 X SODIUM VALPROATE 1GM))
     Route: 065
     Dates: start: 20230122
  2. VALPROATE SODIUM [Suspect]
     Active Substance: VALPROATE SODIUM
     Dosage: 1500 MILLIGRAM DAILY; UNK (500MG OM, 1GRAM ON)
     Route: 065
  3. CLOZARIL [Suspect]
     Active Substance: CLOZAPINE
     Indication: Schizoaffective disorder
     Dosage: 600 MG  (2 X CLOZAPINE 300MG (600MG TOTAL))
     Route: 065
     Dates: start: 20230122
  4. CLOZARIL [Suspect]
     Active Substance: CLOZAPINE
     Dosage: UNK (50MG,300MG)
     Route: 048
     Dates: start: 20181018
  5. DOLUTEGRAVIR SODIUM [Suspect]
     Active Substance: DOLUTEGRAVIR SODIUM
     Indication: Product used for unknown indication
     Dosage: 50 MILLIGRAM DAILY; 50 MG (50MG ON)
     Route: 065
  6. DOLUTEGRAVIR SODIUM [Suspect]
     Active Substance: DOLUTEGRAVIR SODIUM
     Dosage: 100 MILLIGRAM (2 X DOLUTEGRAVIR 50MG)
     Route: 065
     Dates: start: 20230122
  7. SCOPOLAMINE HYDROBROMIDE [Suspect]
     Active Substance: SCOPOLAMINE HYDROBROMIDE
     Indication: Product used for unknown indication
     Dosage: 600 MG (2 X HYOSCINE HYDROBROMIDE 300MICROGRAMS),
     Route: 065
     Dates: start: 20230122
  8. SCOPOLAMINE HYDROBROMIDE [Suspect]
     Active Substance: SCOPOLAMINE HYDROBROMIDE
     Dosage: 600 MILLIGRAM DAILY; 300 MG, BID
     Route: 065
  9. LITHIUM [Suspect]
     Active Substance: LITHIUM
     Indication: Product used for unknown indication
     Dosage: 2 G (2 X LITHIUM 1GRAM)
     Route: 065
     Dates: start: 20230122
  10. LITHIUM [Suspect]
     Active Substance: LITHIUM
     Dosage: 1 GRAM DAILY; 1 G (1 GRAM ON)
     Route: 065
  11. RILPIVIRINE [Suspect]
     Active Substance: RILPIVIRINE
     Indication: Product used for unknown indication
     Dosage: 50 MG  (2 X RILPIVIRINE),
     Route: 065
     Dates: start: 20230122
  12. RILPIVIRINE [Suspect]
     Active Substance: RILPIVIRINE
     Dosage: 25 MILLIGRAM DAILY; 25 MG (25MG ON)
     Route: 065
  13. CHOLECALCIFEROL [Concomitant]
     Active Substance: CHOLECALCIFEROL
     Indication: Product used for unknown indication
     Dosage: 1000 IU (INTERNATIONAL UNIT) DAILY;
     Route: 065
  14. VITAMINS [Concomitant]
     Active Substance: VITAMINS
     Indication: Product used for unknown indication

REACTIONS (5)
  - Antipsychotic drug level increased [Unknown]
  - Somnolence [Unknown]
  - Extra dose administered [Unknown]
  - Contraindicated product administered [Unknown]
  - Product use in unapproved indication [Unknown]

NARRATIVE: CASE EVENT DATE: 20230122
